FAERS Safety Report 26179814 (Version 1)
Quarter: 2025Q4

REPORT INFORMATION
  Report Type: Spontaneous
  Country: GB (occurrence: GB)
  Receive Date: 20251219
  Receipt Date: 20251219
  Transmission Date: 20260117
  Serious: Yes (Life-Threatening, Hospitalization, Other)
  Sender: MERCK SHARP & DOHME LLC
  Company Number: None

PATIENT
  Age: 70 Year
  Sex: Female

DRUGS (5)
  1. ROCURONIUM [Suspect]
     Active Substance: ROCURONIUM BROMIDE
     Indication: General anaesthesia
     Dosage: TIME INTERVAL: TOTAL: 400MG SINGLE DOSE IV
     Route: 042
     Dates: start: 20250826, end: 20250826
  2. TEICOPLANIN [Concomitant]
     Active Substance: TEICOPLANIN
     Indication: Surgery
     Dates: start: 20250826, end: 20250826
  3. ONDANSETRON [Concomitant]
     Active Substance: ONDANSETRON
     Indication: Surgery
     Dates: start: 20250826, end: 20250826
  4. PROPOFOL [Concomitant]
     Active Substance: PROPOFOL
     Indication: Surgery
     Dates: start: 20250826, end: 20250826
  5. REMIFENTANIL [Concomitant]
     Active Substance: REMIFENTANIL
     Indication: Surgery
     Dates: start: 20250826, end: 20250826

REACTIONS (1)
  - Anaphylactic reaction [Recovered/Resolved]

NARRATIVE: CASE EVENT DATE: 20250826
